FAERS Safety Report 9770890 (Version 1)
Quarter: 2013Q4

REPORT INFORMATION
  Report Type: Spontaneous
  Country: US (occurrence: US)
  Receive Date: 20131218
  Receipt Date: 20131218
  Transmission Date: 20140711
  Serious: No
  Sender: FDA-Public Use
  Company Number: US-MYLANLABS-2013S1011916

PATIENT
  Sex: Male
  Weight: 79.38 kg

DRUGS (8)
  1. FLUVOXAMINE MALEATE TABLETS [Suspect]
     Indication: OBSESSIVE-COMPULSIVE DISORDER
     Route: 048
     Dates: start: 2012
  2. DALMANE [Concomitant]
     Route: 048
  3. TRILEPTAL [Concomitant]
     Route: 048
  4. TRUVADA [Concomitant]
     Route: 048
     Dates: start: 2012, end: 20130510
  5. PRILOSEC [Concomitant]
  6. NORVASC [Concomitant]
     Route: 048
  7. LIBRIUM [Concomitant]
     Route: 048
  8. TYLENOL [Concomitant]
     Route: 048

REACTIONS (3)
  - Amnesia [Not Recovered/Not Resolved]
  - Muscular weakness [Not Recovered/Not Resolved]
  - Abdominal pain upper [Not Recovered/Not Resolved]
